FAERS Safety Report 10447984 (Version 6)
Quarter: 2015Q3

REPORT INFORMATION
  Report Type: Spontaneous
  Country: US (occurrence: US)
  Receive Date: 20140911
  Receipt Date: 20150917
  Transmission Date: 20151125
  Serious: Yes (Hospitalization, Disabling, Other)
  Sender: FDA-Public Use
  Company Number: US-MERCK-1409USA004449

PATIENT
  Sex: Female
  Weight: 117.91 kg

DRUGS (6)
  1. JANUVIA [Suspect]
     Active Substance: SITAGLIPTIN PHOSPHATE
     Dosage: 25 MG, QD
     Route: 048
     Dates: start: 20100323
  2. JANUVIA [Suspect]
     Active Substance: SITAGLIPTIN PHOSPHATE
     Dosage: 50 MG, QD
     Route: 048
     Dates: start: 20110331
  3. JANUVIA [Suspect]
     Active Substance: SITAGLIPTIN PHOSPHATE
     Dosage: 100 MG, 1/2 TAB QD
     Route: 048
     Dates: start: 20120223
  4. JANUMET [Suspect]
     Active Substance: METFORMIN HYDROCHLORIDE\SITAGLIPTIN PHOSPHATE
     Dosage: 50- 1000 MG, BID
     Route: 048
  5. BYETTA [Suspect]
     Active Substance: EXENATIDE
     Indication: TYPE 2 DIABETES MELLITUS
     Dosage: 5 MICROGRAM, QD-BID
     Route: 048
     Dates: start: 20120322, end: 20120417
  6. JANUVIA [Suspect]
     Active Substance: SITAGLIPTIN PHOSPHATE
     Indication: TYPE 2 DIABETES MELLITUS
     Dosage: 100 MG, QD
     Route: 048
     Dates: start: 20100413, end: 20110331

REACTIONS (41)
  - Hypothyroidism [Unknown]
  - Wrong technique in product usage process [Unknown]
  - Bladder neck suspension [Unknown]
  - Paraesthesia [Unknown]
  - Hypoaesthesia [Unknown]
  - Abdominal pain [Unknown]
  - Follicular thyroid cancer [Not Recovered/Not Resolved]
  - Thyroidectomy [Unknown]
  - Sleep apnoea syndrome [Unknown]
  - Calcium deficiency [Unknown]
  - Myalgia [Unknown]
  - Shoulder arthroplasty [Unknown]
  - Thyroid neoplasm [Unknown]
  - VIIth nerve paralysis [Unknown]
  - Migraine [Unknown]
  - Flushing [Unknown]
  - Goitre [Unknown]
  - Pyrexia [Unknown]
  - Palpitations [Unknown]
  - Retching [Unknown]
  - Dysphonia [Unknown]
  - Biopsy [Unknown]
  - Hysterectomy [Unknown]
  - Rotator cuff repair [Unknown]
  - Menstruation irregular [Unknown]
  - Eye swelling [Unknown]
  - Nerve compression [Recovered/Resolved]
  - Abdominal tenderness [Unknown]
  - Bladder disorder [Unknown]
  - Upper respiratory tract infection [Unknown]
  - Nausea [Unknown]
  - Metastases to lymph nodes [Unknown]
  - Radioactive iodine therapy [Unknown]
  - Drug ineffective [Unknown]
  - Surgery [Unknown]
  - Carpal tunnel syndrome [Unknown]
  - Diabetes mellitus inadequate control [Unknown]
  - Dysuria [Unknown]
  - Asthma [Not Recovered/Not Resolved]
  - Blood glucose decreased [Unknown]
  - Vomiting [Unknown]

NARRATIVE: CASE EVENT DATE: 2010
